FAERS Safety Report 8184778 (Version 3)
Quarter: 2012Q4

REPORT INFORMATION
  Report Type: 
  Country: US (occurrence: US)
  Receive Date: 20111018
  Receipt Date: 20121121
  Transmission Date: 20130627
  Serious: Yes (Hospitalization, Other)
  Sender: FDA-Public Use
  Company Number: US-US-EMD SERONO, INC.-7089260

PATIENT
  Sex: Female

DRUGS (4)
  1. REBIF [Suspect]
     Indication: MULTIPLE SCLEROSIS
     Route: 058
     Dates: start: 20101116
  2. OXYCONTIN [Concomitant]
     Indication: INTERVERTEBRAL DISC PROTRUSION
  3. OXYCODONE [Concomitant]
     Indication: INTERVERTEBRAL DISC PROTRUSION
  4. LIDOCAINE PATCH [Concomitant]
     Indication: INTERVERTEBRAL DISC PROTRUSION

REACTIONS (9)
  - Cerebrovascular accident [Unknown]
  - Suture insertion [Unknown]
  - Epilepsy [Unknown]
  - Intervertebral disc protrusion [Not Recovered/Not Resolved]
  - Multiple sclerosis relapse [Recovering/Resolving]
  - Fall [Unknown]
  - Influenza like illness [Unknown]
  - Injection site erythema [Not Recovered/Not Resolved]
  - Inappropriate schedule of drug administration [Unknown]
